FAERS Safety Report 8034009-6 (Version None)
Quarter: 2012Q1

REPORT INFORMATION
  Report Type: 
  Country: None (occurrence: None)
  Receive Date: 20120110
  Receipt Date: 20120106
  Transmission Date: 20120608
  Serious: Yes (Life-Threatening, Other)
  Sender: FDA-Public Use
  Company Number: US-ASTRAZENECA-2012SE01143

PATIENT
  Age: 33 Year
  Sex: Female

DRUGS (3)
  1. SEROQUEL [Suspect]
     Indication: BIPOLAR DISORDER
     Route: 048
  2. SEROQUEL [Suspect]
     Indication: ANXIETY
     Route: 048
  3. SEROQUEL [Suspect]
     Indication: PANIC ATTACK
     Route: 048

REACTIONS (13)
  - SUICIDE ATTEMPT [None]
  - DRY MOUTH [None]
  - DIABETES MELLITUS [None]
  - TREMOR [None]
  - DIZZINESS [None]
  - CONSTIPATION [None]
  - BLOOD GLUCOSE INCREASED [None]
  - VISION BLURRED [None]
  - MATERNAL EXPOSURE DURING PREGNANCY [None]
  - ANXIETY [None]
  - DEPRESSION [None]
  - RESTLESSNESS [None]
  - OFF LABEL USE [None]
